FAERS Safety Report 12402310 (Version 3)
Quarter: 2020Q3

REPORT INFORMATION
  Report Type: Spontaneous
  Country: US (occurrence: US)
  Receive Date: 20160525
  Receipt Date: 20200908
  Transmission Date: 20201102
  Serious: No
  Sender: FDA-Public Use
  Company Number: US-SA-2016SA026084

PATIENT

DRUGS (6)
  1. LANTUS SOLOSTAR [Suspect]
     Active Substance: INSULIN GLARGINE
     Indication: TYPE 2 DIABETES MELLITUS
     Dosage: 40 IU, QD
     Route: 065
     Dates: start: 201506
  2. LANTUS SOLOSTAR [Suspect]
     Active Substance: INSULIN GLARGINE
     Indication: DIABETES MELLITUS
     Dosage: 20 IU, BID
     Route: 065
  3. VICTOZA [Concomitant]
     Active Substance: LIRAGLUTIDE
     Dosage: UNK
     Route: 065
  4. LANTUS SOLOSTAR [Suspect]
     Active Substance: INSULIN GLARGINE
     Dosage: 60 UNITS DAILY FOR A WEEK
     Route: 065
  5. LANTUS SOLOSTAR [Suspect]
     Active Substance: INSULIN GLARGINE
     Dosage: 50 IU, QD
     Route: 065
  6. LANTUS SOLOSTAR [Suspect]
     Active Substance: INSULIN GLARGINE
     Dosage: 70 UNITS DAILY
     Route: 065

REACTIONS (9)
  - Blood glucose abnormal [Recovering/Resolving]
  - Wrong technique in device usage process [Unknown]
  - Varices oesophageal [Unknown]
  - Injection site bruising [Unknown]
  - Frustration tolerance decreased [Unknown]
  - Inappropriate schedule of product administration [Unknown]
  - Injection site discolouration [Unknown]
  - Blood glucose increased [Unknown]
  - Intentional product use issue [Recovering/Resolving]
